FAERS Safety Report 18676352 (Version 1)
Quarter: 2020Q4

REPORT INFORMATION
  Report Type: Spontaneous
  Country: US (occurrence: US)
  Receive Date: 20201229
  Receipt Date: 20201229
  Transmission Date: 20210114
  Serious: No
  Sender: FDA-Public Use
  Company Number: US-BIOVITRUM-2020US8051

PATIENT
  Sex: Female
  Weight: 11 kg

DRUGS (3)
  1. SYNAGIS [Suspect]
     Active Substance: PALIVIZUMAB
     Indication: PREMATURE BABY
     Dosage: SYNAGIS 100MG/1ML VL LIQUID/SYNAGIS 50MG/0.5ML VL LIQUID
     Route: 030
  2. SYNAGIS [Suspect]
     Active Substance: PALIVIZUMAB
     Indication: LUNG DISORDER
  3. SYNAGIS [Suspect]
     Active Substance: PALIVIZUMAB
     Indication: DYSPHAGIA

REACTIONS (2)
  - Off label use [Unknown]
  - Injection site erythema [Unknown]
